FAERS Safety Report 6153662-5 (Version None)
Quarter: 2009Q2

REPORT INFORMATION
  Report Type: 
  Country: None (occurrence: None)
  Receive Date: 20090413
  Receipt Date: 20090406
  Transmission Date: 20091009
  Serious: Yes (Other)
  Sender: FDA-Public Use
  Company Number: US-MERCK-0902USA02896

PATIENT
  Age: 88 Year
  Sex: Female

DRUGS (5)
  1. HYZAAR [Suspect]
     Indication: HYPERTENSION
     Route: 048
     Dates: start: 20000101, end: 20090101
  2. HYZAAR [Suspect]
     Route: 048
     Dates: start: 19970627
  3. HYZAAR [Suspect]
     Route: 048
     Dates: start: 20090216, end: 20090219
  4. NORVASC [Concomitant]
     Route: 065
  5. PRINIVIL [Suspect]
     Route: 065

REACTIONS (5)
  - COUGH [None]
  - ECZEMA [None]
  - LUNG NEOPLASM [None]
  - RASH [None]
  - RESPIRATORY PARALYSIS [None]
